FAERS Safety Report 7101279-8 (Version None)
Quarter: 2010Q4

REPORT INFORMATION
  Report Type: 
  Country: None (occurrence: None)
  Receive Date: 20101115
  Receipt Date: 20101108
  Transmission Date: 20110411
  Serious: Yes (Death, Life-Threatening)
  Sender: FDA-Public Use
  Company Number: DE-JNJFOC-20101101883

PATIENT
  Age: 87 Year
  Sex: Female

DRUGS (5)
  1. RISPERDAL [Suspect]
     Indication: ILL-DEFINED DISORDER
     Route: 048
     Dates: start: 20090116, end: 20090119
  2. MADOPAR [Concomitant]
     Indication: ILL-DEFINED DISORDER
     Route: 048
  3. BISOPROLOL FUMARATE [Concomitant]
     Indication: ILL-DEFINED DISORDER
     Route: 048
  4. HCT HEXAL [Concomitant]
     Indication: ILL-DEFINED DISORDER
     Route: 048
  5. LISINOPRIL [Concomitant]
     Indication: ILL-DEFINED DISORDER
     Route: 048

REACTIONS (5)
  - BODY TEMPERATURE [None]
  - COUGH [None]
  - CREPITATIONS [None]
  - GENERAL PHYSICAL HEALTH DETERIORATION [None]
  - PARKINSONISM [None]
